FAERS Safety Report 4632624-0 (Version None)
Quarter: 2005Q2

REPORT INFORMATION
  Report Type: 
  Country: None (occurrence: None)
  Receive Date: 20050331
  Receipt Date: 20040816
  Transmission Date: 20051028
  Serious: Yes (Other)
  Sender: FDA-Public Use
  Company Number: 200414023BCC

PATIENT
  Age: 75 Year
  Sex: Female
  Weight: 58.9676 kg

DRUGS (2)
  1. ALEVE (CAPLET) [Suspect]
     Indication: BACK PAIN
     Dosage: 220 MG, ONCE, ORAL
     Route: 048
     Dates: start: 20040814
  2. ASPIRIN [Suspect]
     Indication: INSOMNIA
     Dosage: 650 MG, HS, ORAL
     Route: 048

REACTIONS (1)
  - HAEMATOCHEZIA [None]
